FAERS Safety Report 23527788 (Version 1)
Quarter: 2024Q1

REPORT INFORMATION
  Report Type: Spontaneous
  Country: US (occurrence: US)
  Receive Date: 20240215
  Receipt Date: 20240215
  Transmission Date: 20240409
  Serious: Yes (Other)
  Sender: FDA-Public Use
  Company Number: US-FOUNDATIONCONSUMERHC-2024-US-004808

PATIENT
  Age: 72 Year
  Sex: Male
  Weight: 90.72 kg

DRUGS (1)
  1. ANBESOL MAXIMUM STRENGTH LIQUID [Suspect]
     Active Substance: BENZOCAINE
     Indication: Analgesic therapy
     Dosage: APPLIED TO THREE DIFFERENT AREAS IN MOUTH ONE TIME
     Route: 048
     Dates: start: 20240123, end: 20240123

REACTIONS (4)
  - Graft complication [Unknown]
  - Oral infection [Not Recovered/Not Resolved]
  - Periodontal inflammation [Not Recovered/Not Resolved]
  - Intentional product misuse [Recovered/Resolved]

NARRATIVE: CASE EVENT DATE: 20240101
